FAERS Safety Report 10143521 (Version 1)
Quarter: 2014Q2

REPORT INFORMATION
  Report Type: Spontaneous
  Country: US (occurrence: US)
  Receive Date: 20140430
  Receipt Date: 20140430
  Transmission Date: 20141212
  Serious: Yes (Other)
  Sender: FDA-Public Use
  Company Number: US-PFIZER INC-2014115276

PATIENT
  Sex: Female

DRUGS (1)
  1. DETROL [Suspect]
     Dosage: 2 MG, SINGLE
     Dates: start: 2014, end: 2014

REACTIONS (1)
  - Urinary retention [Unknown]
